FAERS Safety Report 9142662 (Version 1)
Quarter: 2013Q1

REPORT INFORMATION
  Report Type: Spontaneous
  Country: NL (occurrence: NL)
  Receive Date: 20130306
  Receipt Date: 20130306
  Transmission Date: 20140127
  Serious: Yes (Death)
  Sender: FDA-Public Use
  Company Number: PHHY2013NL021606

PATIENT
  Sex: Male

DRUGS (2)
  1. ZOMETA [Suspect]
     Indication: METASTATIC RENAL CELL CARCINOMA
     Dosage: 4 MG, PER 100 ML ONCE PER 28 DAYS
  2. ZOMETA [Suspect]
     Indication: METASTASES TO LUNG
     Dosage: 4 MG, PER 100 ML ONCE PER 28 DAYS
     Dates: start: 20130214

REACTIONS (1)
  - Death [Fatal]
